FAERS Safety Report 14901906 (Version 1)
Quarter: 2018Q2

REPORT INFORMATION
  Report Type: Report from Study
  Country: US (occurrence: US)
  Receive Date: 20180516
  Receipt Date: 20180516
  Transmission Date: 20180711
  Serious: Yes (Other)
  Sender: FDA-Public Use
  Company Number: US-PURDUE-USA-2018-0143577

PATIENT
  Sex: Female

DRUGS (1)
  1. OXYCODONE HYDROCHLORIDE. [Suspect]
     Active Substance: OXYCODONE HYDROCHLORIDE
     Indication: PAIN
     Dosage: 60 MG, Q8H
     Route: 048

REACTIONS (5)
  - Cataract operation [Unknown]
  - Knee arthroplasty [Unknown]
  - Osteoarthritis [Unknown]
  - Pain [Unknown]
  - Off label use [Unknown]
